FAERS Safety Report 21367915 (Version 1)
Quarter: 2022Q3

REPORT INFORMATION
  Report Type: Spontaneous
  Country: RU (occurrence: RU)
  Receive Date: 20220923
  Receipt Date: 20220923
  Transmission Date: 20221026
  Serious: Yes (Other)
  Sender: FDA-Public Use
  Company Number: RU-JNJFOC-20220932370

PATIENT
  Age: 31 Year
  Sex: Female

DRUGS (3)
  1. OPSUMIT [Suspect]
     Active Substance: MACITENTAN
     Indication: Hypotension
     Route: 048
  2. OPSUMIT [Suspect]
     Active Substance: MACITENTAN
     Indication: Liver disorder
  3. UPTRAVI [Suspect]
     Active Substance: SELEXIPAG
     Indication: Hypotension
     Route: 048

REACTIONS (5)
  - Catheterisation cardiac [Unknown]
  - Diarrhoea [Unknown]
  - Abdominal distension [Unknown]
  - Dizziness [Unknown]
  - Off label use [Unknown]
